FAERS Safety Report 22123891 (Version 1)
Quarter: 2023Q1

REPORT INFORMATION
  Report Type: Spontaneous
  Country: US (occurrence: US)
  Receive Date: 20230322
  Receipt Date: 20230322
  Transmission Date: 20230418
  Serious: Yes (Hospitalization)
  Sender: FDA-Public Use
  Company Number: US-SA-SAC20230320001575

PATIENT
  Age: 69 Year
  Sex: Female

DRUGS (1)
  1. DUPIXENT [Suspect]
     Active Substance: DUPILUMAB
     Indication: Dermatitis atopic
     Dosage: 300 MG QOW
     Route: 058
     Dates: start: 2021

REACTIONS (7)
  - Haematological infection [Unknown]
  - White blood cell count increased [Unknown]
  - Drug hypersensitivity [Unknown]
  - Urticaria [Unknown]
  - Chills [Unknown]
  - Malaise [Unknown]
  - Feeling cold [Unknown]

NARRATIVE: CASE EVENT DATE: 20230315
